FAERS Safety Report 5128684-3 (Version None)
Quarter: 2006Q4

REPORT INFORMATION
  Report Type: 
  Country: None (occurrence: None)
  Receive Date: 20061017
  Receipt Date: 20061010
  Transmission Date: 20070319
  Serious: Yes (Other)
  Sender: FDA-Public Use
  Company Number: 2006AC01853

PATIENT
  Age: 51 Year
  Sex: Male

DRUGS (5)
  1. BUDESONIDE [Suspect]
     Indication: CROHN'S DISEASE
     Dosage: SEVERAL ATTEMPTS MADE TO DISCONTINUE DRUG DURING THIS TIME.
     Route: 048
  2. BUDESONIDE [Suspect]
     Dosage: GRADUAL DECREASE FROM 9 TO 1.5 MG/DAY OVER FIRST 4 MONTHS
  3. AMLODIPINE [Concomitant]
  4. ROSIGLITAZONE [Concomitant]
  5. HYDROCHLOROTHIAZIDE [Concomitant]

REACTIONS (2)
  - DEMENTIA [None]
  - PARKINSONISM [None]
